FAERS Safety Report 14079614 (Version 1)
Quarter: 2017Q4

REPORT INFORMATION
  Report Type: Report from Study
  Country: MX (occurrence: MX)
  Receive Date: 20171012
  Receipt Date: 20171012
  Transmission Date: 20180321
  Serious: Yes (Hospitalization, Other)
  Sender: FDA-Public Use
  Company Number: MX-UCBSA-2017040381

PATIENT
  Sex: Male
  Weight: 19 kg

DRUGS (5)
  1. LEVETIRACETAM. [Suspect]
     Active Substance: LEVETIRACETAM
     Dosage: 5 ML, 2X/DAY (BID)
     Route: 048
  2. LEVETIRACETAM. [Suspect]
     Active Substance: LEVETIRACETAM
     Dosage: DOSE WAS DECREASING UNTIL SUSPENSION
     Route: 048
     Dates: end: 2016
  3. LEVETIRACETAM. [Suspect]
     Active Substance: LEVETIRACETAM
     Dosage: DOSE WAS ADJUSTING UNTIL 5ML/12 HRS
     Route: 048
  4. LEVETIRACETAM. [Suspect]
     Active Substance: LEVETIRACETAM
     Dosage: 1 ML, 2X/DAY (BID)
     Route: 048
     Dates: start: 2012, end: 2012
  5. LEVETIRACETAM. [Suspect]
     Active Substance: LEVETIRACETAM
     Indication: EPILEPSY
     Dosage: 0.5 ML, 2X/DAY (BID)
     Route: 048
     Dates: start: 201201, end: 2012

REACTIONS (7)
  - Dysphagia [Recovered/Resolved]
  - Seizure [Recovered/Resolved]
  - Off label use [Unknown]
  - Incorrect route of drug administration [Unknown]
  - Attention deficit/hyperactivity disorder [Not Recovered/Not Resolved]
  - Nervous system disorder [Recovered/Resolved]
  - Aspiration bronchial [Recovered/Resolved]

NARRATIVE: CASE EVENT DATE: 2012
